FAERS Safety Report 8034027-8 (Version None)
Quarter: 2011Q4

REPORT INFORMATION
  Report Type: 
  Country: None (occurrence: None)
  Receive Date: 20111202
  Receipt Date: 20100121
  Transmission Date: 20120403
  Serious: Yes (Hospitalization)
  Sender: FDA-Public Use
  Company Number: 2010SP005474

PATIENT
  Age: 31 Year
  Sex: Female
  Weight: 104.3273 kg

DRUGS (2)
  1. NUVARING [Suspect]
     Indication: CONTRACEPTION
     Dosage: 1 DF;QM;VAG
     Route: 067
     Dates: start: 20070701, end: 20080625
  2. DILAUDID [Suspect]
     Indication: PAIN
     Dates: start: 20080601, end: 20080601

REACTIONS (3)
  - VOMITING [None]
  - NAUSEA [None]
  - PULMONARY EMBOLISM [None]
